FAERS Safety Report 24304062 (Version 2)
Quarter: 2024Q3

REPORT INFORMATION
  Report Type: Report from Study
  Country: CN (occurrence: CN)
  Receive Date: 20240910
  Receipt Date: 20240920
  Transmission Date: 20241016
  Serious: Yes (Hospitalization)
  Sender: VERITY PHARMACEUTICALS
  Company Number: CN-VER-202400012

PATIENT
  Age: 58 Year
  Sex: Male
  Weight: 70 kg

DRUGS (4)
  1. TRIPTORELIN [Suspect]
     Active Substance: TRIPTORELIN
     Indication: Prostate cancer
     Dosage: POWDER AND SOLVENT FOR SOLUTION FOR INJECTION
     Route: 030
     Dates: start: 20230803
  2. APALUTAMIDE [Concomitant]
     Active Substance: APALUTAMIDE
     Indication: Prostate cancer
     Dosage: 240 MILLIGRAM(S), IN 1 DAY
     Route: 048
     Dates: start: 20230708
  3. DIMETHICONE [Concomitant]
     Active Substance: DIMETHICONE
     Indication: Prophylaxis
     Route: 048
     Dates: start: 20231218, end: 20231218
  4. DIMEGLUMINE GADOPENT ETATE [Concomitant]
     Indication: Prophylaxis
     Dosage: INTRAVENOUS (NOT OTHERWISE SPECIFIED), INJECTION.?(C21H37O15N4GD).
     Route: 065
     Dates: start: 20231218, end: 20231218

REACTIONS (1)
  - Rectal cancer [Recovered/Resolved]

NARRATIVE: CASE EVENT DATE: 20231218
